FAERS Safety Report 23854269 (Version 1)
Quarter: 2024Q2

REPORT INFORMATION
  Report Type: Spontaneous
  Country: US (occurrence: None)
  Receive Date: 20240514
  Receipt Date: 20240514
  Transmission Date: 20240716
  Serious: No
  Sender: FDA-Public Use
  Company Number: None

PATIENT
  Sex: Male

DRUGS (2)
  1. HYRIMOZ [Suspect]
     Active Substance: ADALIMUMAB-ADAZ
     Indication: Crohn^s disease
     Dosage: FREQUENCY : EVERY OTHER WEEK;?
     Route: 058
     Dates: start: 202403, end: 202403
  2. HUMIRA PEN (2/BOX) (ABB) [Concomitant]

REACTIONS (5)
  - Hypersensitivity [None]
  - Throat tightness [None]
  - Chest discomfort [None]
  - Heart rate increased [None]
  - Cold sweat [None]
